FAERS Safety Report 5071960-3 (Version None)
Quarter: 2006Q3

REPORT INFORMATION
  Report Type: 
  Country: None (occurrence: None)
  Receive Date: 20060801
  Receipt Date: 20060717
  Transmission Date: 20061208
  Serious: Yes (Hospitalization)
  Sender: FDA-Public Use
  Company Number: 2006S1006620

PATIENT
  Age: 65 Year
  Sex: Male
  Weight: 92.5338 kg

DRUGS (1)
  1. METOPROLOL TARTRATE [Suspect]
     Indication: ESSENTIAL HYPERTENSION
     Dosage: 100 MG;QD;PO
     Route: 048
     Dates: start: 20060614, end: 20060713

REACTIONS (2)
  - DYSPNOEA [None]
  - NON-CARDIAC CHEST PAIN [None]
